FAERS Safety Report 23876087 (Version 1)
Quarter: 2024Q2

REPORT INFORMATION
  Report Type: Spontaneous
  Country: GB (occurrence: GB)
  Receive Date: 20240520
  Receipt Date: 20240520
  Transmission Date: 20240715
  Serious: Yes (Hospitalization, Other)
  Sender: FDA-Public Use
  Company Number: GB-ABBVIE-5766159

PATIENT
  Sex: Female

DRUGS (2)
  1. VENETOCLAX [Suspect]
     Active Substance: VENETOCLAX
     Indication: Chronic lymphocytic leukaemia
     Route: 048
  2. OBINUTUZUMAB [Suspect]
     Active Substance: OBINUTUZUMAB
     Indication: Chronic lymphocytic leukaemia
     Route: 065

REACTIONS (3)
  - Incorrect dose administered [Unknown]
  - Full blood count abnormal [Unknown]
  - Tumour lysis syndrome [Unknown]
